FAERS Safety Report 10832059 (Version 2)
Quarter: 2015Q2

REPORT INFORMATION
  Report Type: Spontaneous
  Country: CA (occurrence: CA)
  Receive Date: 20150219
  Receipt Date: 20150416
  Transmission Date: 20150821
  Serious: Yes (Disabling, Other)
  Sender: FDA-Public Use
  Company Number: CA-GSKJP-KK201319908GSK1550188002

PATIENT
  Age: 48 Year
  Sex: Female
  Weight: 69 kg

DRUGS (7)
  1. BENLYSTA [Suspect]
     Active Substance: BELIMUMAB
     Indication: SYSTEMIC LUPUS ERYTHEMATOSUS
     Dosage: 667 - 670 MG EVERY 2 WEEKS THEN EVERY 4 WEEKS
     Route: 042
     Dates: start: 20120222
  2. PREDNISONE. [Concomitant]
     Active Substance: PREDNISONE
     Indication: PRODUCT USED FOR UNKNOWN INDICATION
     Route: 065
  3. MORPHINE [Concomitant]
     Active Substance: MORPHINE
     Indication: PRODUCT USED FOR UNKNOWN INDICATION
  4. PLAQUENIL [Concomitant]
     Active Substance: HYDROXYCHLOROQUINE SULFATE
     Indication: PRODUCT USED FOR UNKNOWN INDICATION
     Route: 065
  5. BENLYSTA [Suspect]
     Active Substance: BELIMUMAB
     Dosage: 690 MG, UNK
     Dates: start: 20120222
  6. PNEUMOVAX 23 [Concomitant]
     Active Substance: PNEUMOCOCCAL VACCINE, POLYVALENT 23
     Indication: PRODUCT USED FOR UNKNOWN INDICATION
     Dates: start: 20131219
  7. IMURAN [Concomitant]
     Active Substance: AZATHIOPRINE
     Indication: PRODUCT USED FOR UNKNOWN INDICATION
     Route: 065

REACTIONS (19)
  - Nausea [Not Recovered/Not Resolved]
  - Bone pain [Unknown]
  - Drug ineffective [Unknown]
  - Oedema [Unknown]
  - Local swelling [Not Recovered/Not Resolved]
  - Facet joint block [Unknown]
  - Disability [Unknown]
  - Migraine [Not Recovered/Not Resolved]
  - Hyperaesthesia [Unknown]
  - Pain [Unknown]
  - Sinusitis [Not Recovered/Not Resolved]
  - Influenza [Recovered/Resolved]
  - Muscular weakness [Not Recovered/Not Resolved]
  - Cyanosis [Unknown]
  - Pneumonia [Unknown]
  - Fatigue [Not Recovered/Not Resolved]
  - Raynaud^s phenomenon [Unknown]
  - Back pain [Unknown]
  - Urinary tract infection [Unknown]

NARRATIVE: CASE EVENT DATE: 20120223
